FAERS Safety Report 6191700-4 (Version None)
Quarter: 2009Q2

REPORT INFORMATION
  Report Type: 
  Country: None (occurrence: None)
  Receive Date: 20090515
  Receipt Date: 20090504
  Transmission Date: 20091009
  Serious: Yes (Disabling)
  Sender: FDA-Public Use
  Company Number: NL-AMGEN-US317170

PATIENT
  Age: 58 Year
  Sex: Female

DRUGS (4)
  1. ENBREL [Suspect]
     Indication: RHEUMATOID ARTHRITIS
     Dosage: LYOPHILISED: 50 MG 1 TIME PER WEEK
     Route: 058
     Dates: start: 20031001
  2. HUMIRA [Suspect]
     Indication: RHEUMATOID ARTHRITIS
     Dates: start: 20080910
  3. PREDNISONE [Concomitant]
     Indication: RHEUMATOID ARTHRITIS
     Dosage: UNKNOWN
     Dates: start: 19740101
  4. METHOTREXATE [Concomitant]
     Indication: RHEUMATOID ARTHRITIS
     Dosage: INCREASING DOSAGES
     Dates: start: 19860101

REACTIONS (7)
  - COUGH [None]
  - INJECTION SITE PAIN [None]
  - JOINT SWELLING [None]
  - MOVEMENT DISORDER [None]
  - PAIN [None]
  - PARALYSIS [None]
  - PNEUMONIA [None]
